FAERS Safety Report 4543801-1 (Version None)
Quarter: 2005Q1

REPORT INFORMATION
  Report Type: 
  Country: None (occurrence: None)
  Receive Date: 20050104
  Receipt Date: 20041223
  Transmission Date: 20050727
  Serious: Yes (Disabling)
  Sender: FDA-Public Use
  Company Number: NO-BRISTOL-MYERS SQUIBB COMPANY-12806444

PATIENT
  Age: 70 Year
  Sex: Male

DRUGS (5)
  1. PENTREXYL INJ 2 G [Suspect]
     Dosage: ADMINISTERED FROM 11:00 TO 11:30 VIA IV BOLUS
     Route: 042
     Dates: start: 20040101
  2. CURACIT [Suspect]
     Indication: ANAESTHESIA
     Dosage: ADMINISTERED AT 11:45 VIA IV BOLUS
     Route: 042
     Dates: start: 20040101
  3. METRONIDAZOLE [Suspect]
     Route: 042
  4. PENTOTHAL [Suspect]
     Indication: ANAESTHESIA
     Dosage: ADMINISTERED AT 11:45 VIA IV BOLUS
     Route: 042
     Dates: start: 20040101
  5. LEPTANAL [Concomitant]
     Indication: ANAESTHESIA
     Dosage: ADMINISTERED AT 11:40 VIA IV BOLUS
     Route: 042
     Dates: start: 20040101

REACTIONS (2)
  - ANAESTHETIC COMPLICATION [None]
  - BLISTER [None]
